FAERS Safety Report 5234032-0 (Version None)
Quarter: 2007Q1

REPORT INFORMATION
  Report Type: 
  Country: None (occurrence: None)
  Receive Date: 20070208
  Receipt Date: 20070207
  Transmission Date: 20070707
  Serious: Yes (Death)
  Sender: FDA-Public Use
  Company Number: US-BAXTER-2007BH001708

PATIENT
  Age: 74 Year
  Sex: Male
  Weight: 58 kg

DRUGS (4)
  1. ATIVAN [Suspect]
     Indication: AGITATION
     Route: 042
  2. ATIVAN [Suspect]
     Route: 042
  3. DILAUDID [Suspect]
     Indication: PAIN
     Route: 065
  4. HALOPERIDOL [Suspect]
     Indication: CONFUSIONAL STATE
     Route: 065

REACTIONS (14)
  - ACUTE RESPIRATORY DISTRESS SYNDROME [None]
  - ARRHYTHMIA [None]
  - BLOOD PRESSURE DECREASED [None]
  - BRADYCARDIA [None]
  - CONFUSIONAL STATE [None]
  - DEATH [None]
  - DISORIENTATION [None]
  - LOSS OF CONSCIOUSNESS [None]
  - MEDICATION ERROR [None]
  - MYOCARDIAL INFARCTION [None]
  - OXYGEN SATURATION DECREASED [None]
  - PARALYSIS [None]
  - PULSE ABSENT [None]
  - RENAL FAILURE ACUTE [None]
